FAERS Safety Report 11992940 (Version 1)
Quarter: 2016Q1

REPORT INFORMATION
  Report Type: Spontaneous
  Country: US (occurrence: None)
  Receive Date: 20160202
  Receipt Date: 20160202
  Transmission Date: 20160526
  Serious: Yes (Hospitalization)
  Sender: FDA-Public Use
  Company Number: None

PATIENT
  Age: 81 Year
  Sex: Male
  Weight: 99.4 kg

DRUGS (1)
  1. WARFARIN [Suspect]
     Active Substance: WARFARIN
     Indication: ATRIAL FIBRILLATION
     Dosage: MG   PO
     Route: 048
     Dates: start: 19951017

REACTIONS (4)
  - Portal hypertensive gastropathy [None]
  - Anaemia [None]
  - Varices oesophageal [None]
  - Large intestine polyp [None]

NARRATIVE: CASE EVENT DATE: 20160113
